FAERS Safety Report 24354653 (Version 3)
Quarter: 2025Q2

REPORT INFORMATION
  Report Type: Spontaneous
  Country: US (occurrence: US)
  Receive Date: 20240923
  Receipt Date: 20250527
  Transmission Date: 20250717
  Serious: Yes (Other)
  Sender: SANOFI AVENTIS
  Company Number: US-SA-2024SA273132

PATIENT
  Age: 39 Year
  Sex: Female
  Weight: 99.09 kg

DRUGS (14)
  1. DUPIXENT [Suspect]
     Active Substance: DUPILUMAB
     Indication: Dermatitis atopic
     Dosage: 300 MG, QOW
     Route: 058
     Dates: start: 20240508, end: 20240731
  2. DUPIXENT [Suspect]
     Active Substance: DUPILUMAB
     Dates: start: 20240909
  3. VITAMIN C [Concomitant]
     Active Substance: ASCORBIC ACID
  4. MINERALS\VITAMINS [Concomitant]
     Active Substance: MINERALS\VITAMINS
  5. FLONASE ALLERGY RELIEF [Concomitant]
     Active Substance: FLUTICASONE PROPIONATE
  6. VITAMIN D3 [Concomitant]
     Active Substance: CHOLECALCIFEROL
  7. MAGNESIUM [Concomitant]
     Active Substance: MAGNESIUM
  8. TACROLIMUS [Concomitant]
     Active Substance: TACROLIMUS
  9. GUAIFENESIN [Concomitant]
     Active Substance: GUAIFENESIN
  10. HERBALS\TURMERIC [Concomitant]
     Active Substance: HERBALS\TURMERIC
  11. EUCRISA [Concomitant]
     Active Substance: CRISABOROLE
  12. CALCIUM [Concomitant]
     Active Substance: CALCIUM
  13. FISH OIL [Concomitant]
     Active Substance: FISH OIL
  14. ENBREL [Concomitant]
     Active Substance: ETANERCEPT

REACTIONS (8)
  - Immunodeficiency [Unknown]
  - Deafness unilateral [Unknown]
  - Illness [Not Recovered/Not Resolved]
  - Labyrinthitis [Not Recovered/Not Resolved]
  - Viral infection [Not Recovered/Not Resolved]
  - Malaise [Not Recovered/Not Resolved]
  - Pyrexia [Unknown]
  - Sinusitis [Not Recovered/Not Resolved]

NARRATIVE: CASE EVENT DATE: 20240101
